FAERS Safety Report 7461988-8 (Version None)
Quarter: 2011Q2

REPORT INFORMATION
  Report Type: 
  Country: None (occurrence: None)
  Receive Date: 20110506
  Receipt Date: 20110428
  Transmission Date: 20111010
  Serious: Yes (Other)
  Sender: FDA-Public Use
  Company Number: PHHY2011BR37196

PATIENT
  Sex: Female

DRUGS (4)
  1. ATENOLOL [Concomitant]
     Dosage: 50 MG, UNK
  2. DIOVAN [Suspect]
     Dosage: UNK
  3. PURAN T4 [Concomitant]
     Dosage: UNK
  4. ANGELICA [Concomitant]
     Dosage: UNK

REACTIONS (8)
  - INTERVERTEBRAL DISC PROTRUSION [None]
  - HYPERHIDROSIS [None]
  - ANXIETY [None]
  - HAEMORRHAGE [None]
  - GENERAL PHYSICAL CONDITION ABNORMAL [None]
  - CRYING [None]
  - MENSTRUAL DISORDER [None]
  - BLOOD CHOLESTEROL INCREASED [None]
